FAERS Safety Report 6459961-1 (Version None)
Quarter: 2009Q4

REPORT INFORMATION
  Report Type: 
  Country: None (occurrence: None)
  Receive Date: 20091129
  Receipt Date: 20091116
  Transmission Date: 20100525
  Serious: Yes (Other)
  Sender: FDA-Public Use
  Company Number: PHHY2009CA49327

PATIENT
  Sex: Female

DRUGS (1)
  1. ACLASTA [Suspect]
     Indication: OSTEOPOROSIS
     Dosage: UNK
     Dates: start: 20091107

REACTIONS (9)
  - ARTHRALGIA [None]
  - CHILLS [None]
  - DIZZINESS [None]
  - EPILEPSY [None]
  - HEAD INJURY [None]
  - HYPOAESTHESIA [None]
  - JOINT SWELLING [None]
  - LOSS OF CONSCIOUSNESS [None]
  - SWELLING [None]
